FAERS Safety Report 8082632 (Version 3)
Quarter: 2012Q4

REPORT INFORMATION
  Report Type: Report from Study
  Country: FR (occurrence: FR)
  Receive Date: 20110809
  Receipt Date: 20120907
  Transmission Date: 20130627
  Serious: Yes (Death, Hospitalization)
  Sender: FDA-Public Use
  Company Number: PHHY2011FR71193

PATIENT
  Age: 63 Year
  Sex: Male
  Weight: 80 kg

DRUGS (11)
  1. EVEROLIMUS [Suspect]
     Indication: RENAL CANCER
     Dosage: 10 mg, UNK
     Route: 048
     Dates: start: 20110509
  2. LYRICA [Concomitant]
  3. UMULINE [Concomitant]
  4. PLAVIX [Concomitant]
  5. INEXIUM [Concomitant]
  6. FUROSEMIDE [Concomitant]
  7. DISCOTRINE [Concomitant]
     Dosage: 10 UKN, UNK
  8. TRIATEC [Concomitant]
     Dosage: 2.5 mg, UNK
  9. LOPRESSOR [Concomitant]
     Dosage: 100 mg, UNK
  10. TAHOR [Concomitant]
     Dosage: 40 mg, UNK
  11. LXPRIM [Concomitant]

REACTIONS (2)
  - Death [Fatal]
  - Dyspnoea [Unknown]
